FAERS Safety Report 26200598 (Version 1)
Quarter: 2025Q4

REPORT INFORMATION
  Report Type: Report from Study
  Country: EU (occurrence: EU)
  Receive Date: 20251225
  Receipt Date: 20251225
  Transmission Date: 20260117
  Serious: Yes (Death)
  Sender: ABBVIE
  Company Number: EU-ABBVIE-6606833

PATIENT
  Age: 82 Year
  Sex: Male

DRUGS (3)
  1. FOSCARBIDOPA\FOSLEVODOPA [Suspect]
     Active Substance: FOSCARBIDOPA\FOSLEVODOPA
     Indication: Parkinson^s disease
     Dosage: CR 0.52ML/H; CR HIGH 0.53ML/H; CR LOW 0.22ML/H; ED 0.25ML
     Route: 058
     Dates: start: 20250408, end: 20251222
  2. MIRABEGRON [Concomitant]
     Active Substance: MIRABEGRON
     Indication: Product used for unknown indication
     Dosage: 0-0-1-0
  3. VESISOL [Concomitant]
     Indication: Product used for unknown indication
     Dosage: 1-0-0-0

REACTIONS (1)
  - Death [Fatal]

NARRATIVE: CASE EVENT DATE: 20251222
